FAERS Safety Report 8509340-8 (Version None)
Quarter: 2012Q3

REPORT INFORMATION
  Report Type: 
  Country: None (occurrence: None)
  Receive Date: 20120713
  Receipt Date: 20120704
  Transmission Date: 20120928
  Serious: Yes (Hospitalization)
  Sender: FDA-Public Use
  Company Number: GB-SANOFI-AVENTIS-2012SA048036

PATIENT
  Age: 35 Year
  Sex: Female

DRUGS (10)
  1. FOLIC ACID [Concomitant]
     Dates: start: 20111014
  2. CODEINE SULFATE [Concomitant]
     Dates: start: 20111016, end: 20111016
  3. PEGFILGRASTIM [Concomitant]
     Route: 058
     Dates: start: 20111117, end: 20111208
  4. EPIRUBICIN [Concomitant]
     Dates: start: 20110824, end: 20111005
  5. DOCETAXEL [Suspect]
     Route: 065
     Dates: start: 20111026, end: 20111207
  6. BLINDED THERAPY [Suspect]
     Indication: BREAST CANCER
     Route: 065
     Dates: start: 20110928
  7. ACETAMINOPHEN [Concomitant]
     Dates: start: 20111013, end: 20111016
  8. METRONIDAZOLE [Concomitant]
     Dates: start: 20111013, end: 20111016
  9. SANDO K [Concomitant]
     Dates: start: 20111016, end: 20111016
  10. PEGFILGRASTIM [Concomitant]
     Route: 058
     Dates: start: 20111116

REACTIONS (3)
  - HYPOKALAEMIA [None]
  - ARTHRALGIA [None]
  - HAEMOPHILUS INFECTION [None]
